FAERS Safety Report 24273496 (Version 1)
Quarter: 2024Q3

REPORT INFORMATION
  Report Type: Spontaneous
  Country: US (occurrence: US)
  Receive Date: 20240902
  Receipt Date: 20240902
  Transmission Date: 20241017
  Serious: Yes (Other)
  Sender: PFIZER
  Company Number: US-PFIZER INC-202400246355

PATIENT
  Age: 52 Year
  Sex: Male
  Weight: 88.435 kg

DRUGS (3)
  1. NARDIL [Suspect]
     Active Substance: PHENELZINE SULFATE
     Indication: Depression
     Dosage: N THE MORNING AND IN THE EVENING
  2. NARDIL [Suspect]
     Active Substance: PHENELZINE SULFATE
     Indication: Anxiety
  3. NARDIL [Suspect]
     Active Substance: PHENELZINE SULFATE
     Indication: Parkinson^s disease

REACTIONS (7)
  - Syncope [Unknown]
  - Product formulation issue [Unknown]
  - Therapeutic product effect decreased [Unknown]
  - Hypertension [Unknown]
  - Insomnia [Unknown]
  - Weight increased [Unknown]
  - Therapeutic response unexpected [Unknown]

NARRATIVE: CASE EVENT DATE: 20240101
